FAERS Safety Report 6488775-1 (Version None)
Quarter: 2009Q4

REPORT INFORMATION
  Report Type: 
  Country: None (occurrence: None)
  Receive Date: 20091207
  Receipt Date: 20091121
  Transmission Date: 20100525
  Serious: Yes (Hospitalization, Other)
  Sender: FDA-Public Use
  Company Number: AUR-APL-2009-01365

PATIENT
  Age: 62 Year
  Sex: Female

DRUGS (2)
  1. TERBINAFINE HCL [Suspect]
     Indication: ONYCHOMYCOSIS
     Dosage: 250MG - DAILY - UNK
     Route: 065
  2. PREDNISOLONE [Concomitant]

REACTIONS (6)
  - BLOOD CREATININE INCREASED [None]
  - LEUKOCYTOSIS [None]
  - NEUTROPHILIA [None]
  - RASH PAPULAR [None]
  - RASH PUSTULAR [None]
  - SKIN OEDEMA [None]
